FAERS Safety Report 25150686 (Version 1)
Quarter: 2025Q2

REPORT INFORMATION
  Report Type: Spontaneous
  Country: US (occurrence: US)
  Receive Date: 20250402
  Receipt Date: 20250402
  Transmission Date: 20250717
  Serious: No
  Sender: SANOFI AVENTIS
  Company Number: US-COSETTE-CP2025US000294

PATIENT
  Sex: Female

DRUGS (4)
  1. AMBIEN [Suspect]
     Active Substance: ZOLPIDEM TARTRATE
     Indication: Insomnia
  2. DUPIXENT [Concomitant]
     Active Substance: DUPILUMAB
     Indication: Dermatitis atopic
     Dates: start: 202405
  3. SEMAGLUTIDE [Concomitant]
     Active Substance: SEMAGLUTIDE
  4. ORENCIA [Concomitant]
     Active Substance: ABATACEPT

REACTIONS (1)
  - Drug ineffective [Unknown]
